FAERS Safety Report 6945911-8 (Version None)
Quarter: 2010Q3

REPORT INFORMATION
  Report Type: 
  Country: None (occurrence: None)
  Receive Date: 20100827
  Receipt Date: 20100817
  Transmission Date: 20110219
  Serious: Yes (Hospitalization)
  Sender: FDA-Public Use
  Company Number: PHHY2010VE54360

PATIENT
  Sex: Female

DRUGS (3)
  1. ZOLEDRONIC [Suspect]
     Dosage: 5 MG/100 ML PER YEAR
     Route: 042
     Dates: start: 20100512
  2. CALCIUM [Concomitant]
     Indication: HYPERTENSION
     Dosage: UNK
  3. GLUCOSAMINE [Concomitant]
     Indication: BLOOD CHOLESTEROL
     Dosage: UNK

REACTIONS (3)
  - FALL [None]
  - SURGERY [None]
  - WRIST FRACTURE [None]
